FAERS Safety Report 12465594 (Version 1)
Quarter: 2016Q2

REPORT INFORMATION
  Report Type: Spontaneous
  Country: US (occurrence: US)
  Receive Date: 20160614
  Receipt Date: 20160614
  Transmission Date: 20160815
  Serious: Yes (Other)
  Sender: FDA-Public Use
  Company Number: US-TEVA-666867USA

PATIENT
  Age: 63 Year
  Sex: Male

DRUGS (1)
  1. INDOMETACIN [Suspect]
     Active Substance: INDOMETHACIN
     Indication: GOUT
     Route: 065
     Dates: start: 20160603

REACTIONS (2)
  - Seizure [Unknown]
  - False positive investigation result [Unknown]

NARRATIVE: CASE EVENT DATE: 20160603
